FAERS Safety Report 24892395 (Version 1)
Quarter: 2025Q1

REPORT INFORMATION
  Report Type: Other
  Country: DE (occurrence: DE)
  Receive Date: 20250128
  Receipt Date: 20250128
  Transmission Date: 20250408
  Serious: Yes (Death)
  Sender: ANI
  Company Number: DE-ANIPHARMA-015476

PATIENT
  Age: 59 Year
  Sex: Female

DRUGS (2)
  1. TEMOZOLOMIDE [Suspect]
     Active Substance: TEMOZOLOMIDE
     Indication: Glioblastoma
     Dates: start: 201812, end: 201902
  2. TEMOZOLOMIDE [Suspect]
     Active Substance: TEMOZOLOMIDE
     Indication: Glioblastoma
     Dates: start: 201903

REACTIONS (1)
  - Disease progression [Fatal]
